FAERS Safety Report 21532828 (Version 1)
Quarter: 2022Q4

REPORT INFORMATION
  Report Type: Report from Study
  Country: US (occurrence: US)
  Receive Date: 20221101
  Receipt Date: 20221101
  Transmission Date: 20230113
  Serious: Yes (Death)
  Sender: FDA-Public Use
  Company Number: US-ABBVIE-4182823

PATIENT
  Sex: Female

DRUGS (1)
  1. VENCLEXTA [Suspect]
     Active Substance: VENETOCLAX
     Indication: Acute myeloid leukaemia
     Dosage: FOR 14 DAYS ON THEN 14 DAYS OFF EACH 28 DAY CYCLE, FORM STRENGTH: 100  MILLIGRAM
     Route: 048
     Dates: start: 20211217

REACTIONS (1)
  - Death [Fatal]
